FAERS Safety Report 5194647-5 (Version None)
Quarter: 2006Q4

REPORT INFORMATION
  Report Type: 
  Country: None (occurrence: None)
  Receive Date: 20061226
  Receipt Date: 20061226
  Transmission Date: 20070319
  Serious: Yes (Other)
  Sender: FDA-Public Use
  Company Number: None

PATIENT
  Sex: Female

DRUGS (1)
  1. WELLBUTRIN SR [Suspect]
     Indication: DEPRESSION
     Dosage: PO QD
     Route: 048
     Dates: start: 20061127, end: 20061129

REACTIONS (2)
  - DYSMENORRHOEA [None]
  - METRORRHAGIA [None]
